FAERS Safety Report 10347455 (Version 2)
Quarter: 2014Q3

REPORT INFORMATION
  Report Type: Report from Study
  Country: ES (occurrence: ES)
  Receive Date: 20140729
  Receipt Date: 20140808
  Transmission Date: 20150326
  Serious: Yes (Hospitalization)
  Sender: FDA-Public Use
  Company Number: ES-ABBVIE-14K-144-1263104-00

PATIENT
  Age: 62 Year
  Sex: Male

DRUGS (1)
  1. HUMIRA [Suspect]
     Active Substance: ADALIMUMAB
     Indication: PSORIASIS

REACTIONS (6)
  - Disorientation [Unknown]
  - Sinusitis [Unknown]
  - Confusional state [Unknown]
  - Arteriosclerosis coronary artery [Unknown]
  - Tension headache [Unknown]
  - Memory impairment [Unknown]

NARRATIVE: CASE EVENT DATE: 201301
